FAERS Safety Report 16200448 (Version 1)
Quarter: 2019Q2

REPORT INFORMATION
  Report Type: Report from Study
  Country: GB (occurrence: TW)
  Receive Date: 20190416
  Receipt Date: 20190416
  Transmission Date: 20190711
  Serious: Yes (Other)
  Sender: FDA-Public Use
  Company Number: TW-B.I. PHARMACEUTICALS,INC./RIDGEFIELD-2019-BI-016797

PATIENT
  Age: 65 Year
  Sex: Male

DRUGS (4)
  1. MICARDIS [Suspect]
     Active Substance: TELMISARTAN
     Indication: PRODUCT USED FOR UNKNOWN INDICATION
     Dosage: DOSE-NR
     Route: 065
  2. LERCANIDIPINE [Suspect]
     Active Substance: LERCANIDIPINE
     Indication: PRODUCT USED FOR UNKNOWN INDICATION
     Dosage: DOSE-NR
     Route: 065
  3. MOBIC [Suspect]
     Active Substance: MELOXICAM
     Indication: PRODUCT USED FOR UNKNOWN INDICATION
     Dosage: DOSE-NR
     Route: 065
  4. MOSAPRIDE [Suspect]
     Active Substance: MOSAPRIDE
     Indication: PRODUCT USED FOR UNKNOWN INDICATION
     Dosage: DOSE-NR
     Route: 065

REACTIONS (1)
  - Stevens-Johnson syndrome [Unknown]
